FAERS Safety Report 6735347-7 (Version None)
Quarter: 2010Q2

REPORT INFORMATION
  Report Type: 
  Country: None (occurrence: None)
  Receive Date: 20100521
  Receipt Date: 20100512
  Transmission Date: 20101027
  Serious: Yes (Hospitalization)
  Sender: FDA-Public Use
  Company Number: ES-ASTRAZENECA-2010SE21691

PATIENT
  Age: 29 Year
  Sex: Female

DRUGS (6)
  1. SEROQUEL XR [Suspect]
     Indication: SCHIZOPHRENIA, PARANOID TYPE
     Route: 048
     Dates: start: 20090217, end: 20090621
  2. SEROQUEL XR [Interacting]
     Dosage: 100 TABLETS OF 300 MG
     Route: 048
  3. ETUMINA [Interacting]
     Indication: SCHIZOPHRENIA, PARANOID TYPE
     Route: 048
     Dates: start: 20090217, end: 20090621
  4. ETUMINA [Interacting]
     Dosage: 30 TABLETS OF 40 MG
     Route: 048
  5. SINOGAN [Interacting]
     Indication: SCHIZOPHRENIA, PARANOID TYPE
     Route: 048
     Dates: start: 20090217, end: 20090621
  6. SINOGAN [Interacting]
     Dosage: 40 TABLETS OF 25 MG
     Route: 048

REACTIONS (4)
  - DRUG INTERACTION [None]
  - ENCEPHALOPATHY [None]
  - HYPOTENSION [None]
  - SUICIDE ATTEMPT [None]
